FAERS Safety Report 20431232 (Version 2)
Quarter: 2022Q2

REPORT INFORMATION
  Report Type: Spontaneous
  Country: US (occurrence: US)
  Receive Date: 20220204
  Receipt Date: 20220415
  Transmission Date: 20220720
  Serious: No
  Sender: FDA-Public Use
  Company Number: US-BAUSCH-BL-2022-002744

PATIENT
  Sex: Female

DRUGS (1)
  1. RETIN-A [Suspect]
     Active Substance: TRETINOIN
     Indication: Skin wrinkling
     Route: 061
     Dates: start: 2022, end: 2022

REACTIONS (4)
  - Dry eye [Unknown]
  - Dyspnoea [Unknown]
  - Product odour abnormal [Unknown]
  - Product use in unapproved indication [Unknown]
